FAERS Safety Report 5265370-3 (Version None)
Quarter: 2007Q1

REPORT INFORMATION
  Report Type: 
  Country: None (occurrence: None)
  Receive Date: 20070314
  Receipt Date: 20070302
  Transmission Date: 20070707
  Serious: Yes (Hospitalization)
  Sender: FDA-Public Use
  Company Number: FR-PFIZER INC-2007017011

PATIENT
  Age: 87 Year
  Sex: Female
  Weight: 50 kg

DRUGS (10)
  1. AMLODIPINE [Suspect]
     Route: 048
  2. XANAX [Suspect]
     Route: 048
  3. LASIX [Suspect]
     Route: 048
  4. ESIDRIX [Suspect]
     Route: 048
  5. STABLON [Suspect]
     Route: 048
  6. CLARITIN [Suspect]
     Route: 048
  7. VASTAREL [Suspect]
     Dosage: DAILY DOSE:70MG-FREQ:DAILY
  8. MOPRAL [Suspect]
     Dosage: DAILY DOSE:20MG-FREQ:DAILY
  9. KARDEGIC [Suspect]
     Dosage: DAILY DOSE:75MG-FREQ:DAILY
  10. DIFFU K [Suspect]
     Dosage: TEXT:^6^-FREQ:DAILY

REACTIONS (3)
  - FALL [None]
  - MALAISE [None]
  - VERTIGO [None]
